FAERS Safety Report 5308880-2 (Version None)
Quarter: 2007Q2

REPORT INFORMATION
  Report Type: 
  Country: None (occurrence: None)
  Receive Date: 20070426
  Receipt Date: 20070416
  Transmission Date: 20071010
  Serious: Yes (Hospitalization)
  Sender: FDA-Public Use
  Company Number: BE-PFIZER INC-2007030748

PATIENT
  Age: 66 Year
  Sex: Male

DRUGS (7)
  1. METHYLPREDNISOLONE [Suspect]
     Dosage: DAILY DOSE:32MG
     Route: 048
  2. FUROSEMIDE [Concomitant]
  3. EPOGEN [Concomitant]
  4. METOPROLOL SUCCINATE [Concomitant]
  5. CETIRIZINE HCL [Concomitant]
  6. AMOXICILLIN [Concomitant]
  7. CLAVULANIC ACID [Concomitant]

REACTIONS (3)
  - ASTHENIA [None]
  - HEPATITIS B VIRUS [None]
  - PRURITUS [None]
